FAERS Safety Report 17104912 (Version 1)
Quarter: 2019Q4

REPORT INFORMATION
  Report Type: Spontaneous
  Country: US (occurrence: US)
  Receive Date: 20191107
  Receipt Date: 20191107
  Transmission Date: 20200122
  Serious: Yes (Other)
  Sender: FDA-Public Use
  Company Number: None

PATIENT
  Age: 73 Year
  Sex: Female
  Weight: 74.84 kg

DRUGS (16)
  1. TRAMADOL ER [Concomitant]
     Active Substance: TRAMADOL HYDROCHLORIDE
  2. ASPIRIN (COATED) [Concomitant]
  3. CALCIUM [Concomitant]
     Active Substance: CALCIUM
  4. TAMOXIFEN CITRATE TABLET USP 20 MG [Suspect]
     Active Substance: TAMOXIFEN CITRATE
     Indication: PROPHYLAXIS
     Dosage: ?          QUANTITY:1 DF DOSAGE FORM;?
     Route: 048
     Dates: start: 201504, end: 20190925
  5. NORFEX [Concomitant]
  6. MULTI VITAMIN + MINERAL [Concomitant]
  7. TAMOXIFEN CITRATE TABLET USP 20 MG [Suspect]
     Active Substance: TAMOXIFEN CITRATE
     Indication: BREAST CANCER
     Dosage: ?          QUANTITY:1 DF DOSAGE FORM;?
     Route: 048
     Dates: start: 201504, end: 20190925
  8. PLAVIC [Concomitant]
  9. VIT D [Concomitant]
     Active Substance: VITAMIN D NOS
  10. RANITADINE [Concomitant]
  11. INCRUSE ELLIPTA [Concomitant]
     Active Substance: UMECLIDINIUM BROMIDE
  12. VITAMIN B COMPLEX [Concomitant]
     Active Substance: CYANOCOBALAMIN\DEXPANTHENOL\NIACINAMIDE\PYRIDOXINE HYDROCHLORIDE\RIBOFLAVIN 5^-PHOSPHATE SODIUM\THIAMINE HYDROCHLORIDE\VITAMIN B COMPLEX
  13. POTASSIUM [Concomitant]
     Active Substance: POTASSIUM
  14. TRAMADOL. [Concomitant]
     Active Substance: TRAMADOL
  15. TYLENAL #3 [Concomitant]
  16. VITAMIN C [Concomitant]
     Active Substance: ASCORBIC ACID

REACTIONS (2)
  - Muscle spasms [None]
  - Middle insomnia [None]

NARRATIVE: CASE EVENT DATE: 2016
